FAERS Safety Report 7502129-8 (Version None)
Quarter: 2011Q2

REPORT INFORMATION
  Report Type: 
  Country: None (occurrence: None)
  Receive Date: 20110525
  Receipt Date: 20110519
  Transmission Date: 20111010
  Serious: Yes (Death, Hospitalization)
  Sender: FDA-Public Use
  Company Number: GB-PFIZER INC-2006103420

PATIENT
  Age: 58 Year
  Sex: Male
  Weight: 88 kg

DRUGS (10)
  1. IPRATROPIUM BROMIDE [Concomitant]
     Dosage: 2MLS/500MCG
     Route: 065
  2. INDAPAMIDE [Concomitant]
     Dosage: 2.5 MG, UNK
     Route: 065
  3. SUNITINIB MALATE [Suspect]
     Indication: RENAL CELL CARCINOMA
     Dosage: DAILY
     Route: 048
     Dates: start: 20060713, end: 20060810
  4. THEOPHYLLINE [Concomitant]
     Dosage: 250 UG, UNK
     Route: 065
  5. OXYGEN [Concomitant]
     Dosage: 2 L
     Route: 065
  6. LOSARTAN [Concomitant]
     Dosage: 50 MG, UNK
     Route: 048
  7. ALENDRONATE SODIUM [Concomitant]
     Dosage: 70 MG, WEEKLY
     Route: 065
  8. BUDESONIDE [Concomitant]
     Route: 055
  9. PREDNISOLONE [Concomitant]
     Dosage: 5 MG, X6/DAY
     Route: 065
  10. ALBUTEROL [Concomitant]
     Dosage: 5MG/2.5MLS
     Route: 065

REACTIONS (8)
  - LETHARGY [None]
  - CHRONIC OBSTRUCTIVE PULMONARY DISEASE [None]
  - DECREASED APPETITE [None]
  - ORAL PAIN [None]
  - DISEASE PROGRESSION [None]
  - PULMONARY EMBOLISM [None]
  - RENAL CELL CARCINOMA [None]
  - DEHYDRATION [None]
